FAERS Safety Report 10878083 (Version 1)
Quarter: 2015Q1

REPORT INFORMATION
  Report Type: Spontaneous
  Country: FR (occurrence: None)
  Receive Date: 20150224
  Receipt Date: 20150224
  Transmission Date: 20150721
  Serious: Yes (Other)
  Sender: FDA-Public Use
  Company Number: FR-20140339

PATIENT
  Age: 26 Year
  Sex: Female

DRUGS (1)
  1. DOTAREM [Suspect]
     Active Substance: GADOTERATE MEGLUMINE
     Indication: NUCLEAR MAGNETIC RESONANCE IMAGING
     Route: 042
     Dates: start: 20141007, end: 20141007

REACTIONS (3)
  - Type I hypersensitivity [None]
  - Rash erythematous [None]
  - Urticaria [None]

NARRATIVE: CASE EVENT DATE: 20141007
